FAERS Safety Report 8741221 (Version 2)
Quarter: 2013Q4

REPORT INFORMATION
  Report Type: Spontaneous
  Country: US (occurrence: US)
  Receive Date: 20120824
  Receipt Date: 20131101
  Transmission Date: 20140711
  Serious: No
  Sender: FDA-Public Use
  Company Number: US-009507513-1208USA008269

PATIENT
  Age: 50 Year
  Sex: Male

DRUGS (6)
  1. JANUVIA [Suspect]
     Indication: DIABETES MELLITUS
     Dosage: 100 MG, QD
     Route: 048
  2. LASIX (FUROSEMIDE) [Concomitant]
  3. METFORMIN [Concomitant]
     Dosage: 1000 MG, BID
  4. CRESTOR [Concomitant]
     Dosage: 10 MG, QD
  5. GLIPIZIDE [Concomitant]
     Dosage: 10 MG, UNK
  6. LISINOPRIL [Concomitant]

REACTIONS (1)
  - Fatigue [Unknown]
